FAERS Safety Report 5357313-9 (Version None)
Quarter: 2007Q2

REPORT INFORMATION
  Report Type: 
  Country: None (occurrence: None)
  Receive Date: 20070614
  Receipt Date: 20070605
  Transmission Date: 20071010
  Serious: Yes (Hospitalization)
  Sender: FDA-Public Use
  Company Number: GB-JNJFOC-20070601444

PATIENT
  Age: 76 Year
  Sex: Male

DRUGS (2)
  1. TOPIRAMATE [Suspect]
     Indication: CONVULSION
     Route: 048
  2. CLOBAZAM [Suspect]
     Indication: CONVULSION
     Route: 048

REACTIONS (5)
  - DEPRESSED LEVEL OF CONSCIOUSNESS [None]
  - DYSPHAGIA [None]
  - MOBILITY DECREASED [None]
  - POISONING [None]
  - SOMNOLENCE [None]
